FAERS Safety Report 10895825 (Version 1)
Quarter: 2015Q1

REPORT INFORMATION
  Report Type: Report from Study
  Country: US (occurrence: US)
  Receive Date: 20150307
  Receipt Date: 20150307
  Transmission Date: 20150721
  Serious: Yes (Hospitalization)
  Sender: FDA-Public Use
  Company Number: US-BIOGENIDEC-2015BI025136

PATIENT
  Age: 74 Year
  Sex: Female

DRUGS (14)
  1. ROPINIROLE HCL  0.5 MG [Concomitant]
  2. TECFIDERA [Suspect]
     Active Substance: DIMETHYL FUMARATE
     Indication: MULTIPLE SCLEROSIS
     Route: 048
     Dates: start: 201309
  3. DETROL LA [Concomitant]
     Active Substance: TOLTERODINE TARTRATE
  4. LEVOTHYROXINE 100 MCG [Concomitant]
     Active Substance: LEVOTHYROXINE
  5. VITAMIN D    1000 UNITS [Concomitant]
  6. LANTUS [Concomitant]
     Active Substance: INSULIN GLARGINE
  7. LEVEMIR 100 UNITS/ML [Concomitant]
  8. METFORMIN HCL [Concomitant]
     Active Substance: METFORMIN HYDROCHLORIDE
  9. HUMULIN N 100 UNITS/ML [Concomitant]
  10. VITAMIN E [Concomitant]
     Active Substance: .ALPHA.-TOCOPHEROL
  11. NEXIUM [Concomitant]
     Active Substance: ESOMEPRAZOLE MAGNESIUM
  12. HYDROXYZINE HCL [Concomitant]
     Active Substance: HYDROXYZINE HYDROCHLORIDE
  13. ASPIRIN. [Concomitant]
     Active Substance: ASPIRIN
  14. FISH OIL [Concomitant]
     Active Substance: FISH OIL

REACTIONS (3)
  - Mobility decreased [Unknown]
  - Blood glucose decreased [Unknown]
  - Aphasia [Unknown]

NARRATIVE: CASE EVENT DATE: 20150225
